FAERS Safety Report 25349793 (Version 2)
Quarter: 2025Q3

REPORT INFORMATION
  Report Type: Report from Study
  Country: US (occurrence: US)
  Receive Date: 20250523
  Receipt Date: 20250810
  Transmission Date: 20251021
  Serious: Yes (Hospitalization, Other)
  Sender: ALEXION PHARMACEUTICALS
  Company Number: US-AstraZeneca-CH-00874155A

PATIENT
  Sex: Male
  Weight: 81.1 kg

DRUGS (1)
  1. ACALABRUTINIB [Suspect]
     Active Substance: ACALABRUTINIB
     Indication: B-cell lymphoma
     Dosage: 100 MILLIGRAM, Q12H
     Dates: start: 20240906

REACTIONS (4)
  - Full blood count decreased [Unknown]
  - Cystitis [Unknown]
  - Arthralgia [Unknown]
  - Arthropathy [Unknown]
